APPROVED DRUG PRODUCT: ESZOPICLONE
Active Ingredient: ESZOPICLONE
Strength: 1MG
Dosage Form/Route: TABLET;ORAL
Application: A208451 | Product #001 | TE Code: AB
Applicant: AUROBINDO PHARMA LTD
Approved: Sep 15, 2016 | RLD: No | RS: No | Type: RX